FAERS Safety Report 20086873 (Version 1)
Quarter: 2021Q4

REPORT INFORMATION
  Report Type: Report from Study
  Country: CA (occurrence: CA)
  Receive Date: 20211118
  Receipt Date: 20211118
  Transmission Date: 20220303
  Serious: Yes (Other)
  Sender: FDA-Public Use
  Company Number: CA-BIOGEN-2021BI01069639

PATIENT
  Sex: Male

DRUGS (2)
  1. TYSABRI [Suspect]
     Active Substance: NATALIZUMAB
     Indication: Multiple sclerosis
     Route: 042
     Dates: start: 20200507, end: 20210414
  2. TYSABRI [Suspect]
     Active Substance: NATALIZUMAB
     Route: 042

REACTIONS (1)
  - Anal abscess [Recovered/Resolved]
